FAERS Safety Report 20703713 (Version 1)
Quarter: 2022Q2

REPORT INFORMATION
  Report Type: Spontaneous
  Country: US (occurrence: US)
  Receive Date: 20220413
  Receipt Date: 20220413
  Transmission Date: 20220721
  Serious: Yes (Other)
  Sender: FDA-Public Use
  Company Number: US-JNJFOC-20220411429

PATIENT
  Age: 70 Year
  Sex: Female

DRUGS (1)
  1. ACETAMINOPHEN [Suspect]
     Active Substance: ACETAMINOPHEN
     Indication: Arthralgia
     Dosage: APPROXIMATELY 5 GRAMS/DAY FOR THE LAST SEVERAL MONTHS
     Route: 065

REACTIONS (5)
  - Renal tubular injury [Recovered/Resolved]
  - Hepatotoxicity [Recovered/Resolved]
  - Mental status changes [Recovered/Resolved]
  - Product use in unapproved indication [Recovered/Resolved]
  - Overdose [Recovered/Resolved]
